FAERS Safety Report 18902240 (Version 1)
Quarter: 2021Q1

REPORT INFORMATION
  Report Type: Spontaneous
  Country: FR (occurrence: FR)
  Receive Date: 20210217
  Receipt Date: 20210217
  Transmission Date: 20210420
  Serious: Yes (Hospitalization, Other)
  Sender: FDA-Public Use
  Company Number: FR-PFIZER INC-2021125392

PATIENT
  Age: 16 Year
  Sex: Male
  Weight: 90 kg

DRUGS (3)
  1. SOLUPRED [PREDNISOLONE METASULFOBENZOATE SODIUM] [Suspect]
     Active Substance: PREDNISOLONE SODIUM METAZOATE
     Indication: INFECTION
     Dosage: 60 MG, 1X/DAY
     Route: 048
  2. DIMETANE?DC [Suspect]
     Active Substance: BROMPHENIRAMINE MALEATE\CODEINE PHOSPHATE\PHENYLPROPANOLAMINE HYDROCHLORIDE
     Indication: COUGH
     Dosage: UNK
     Route: 048
  3. AZITHROMYCINE [Suspect]
     Active Substance: AZITHROMYCIN
     Indication: INFECTION
     Dosage: 500 MG, 1X/DAY
     Route: 048

REACTIONS (1)
  - Generalised tonic-clonic seizure [Recovered/Resolved]

NARRATIVE: CASE EVENT DATE: 20201106
